APPROVED DRUG PRODUCT: SERTRALINE HYDROCHLORIDE
Active Ingredient: SERTRALINE HYDROCHLORIDE
Strength: EQ 200MG BASE
Dosage Form/Route: CAPSULE;ORAL
Application: A218853 | Product #002 | TE Code: AB
Applicant: ZENARA PHARMA PRIVATE LTD
Approved: Jul 16, 2025 | RLD: No | RS: No | Type: RX

EXCLUSIVITY:
Code: CGT | Date: Jan 18, 2026